FAERS Safety Report 18259867 (Version 1)
Quarter: 2020Q3

REPORT INFORMATION
  Report Type: Spontaneous
  Country: CA (occurrence: CA)
  Receive Date: 20200912
  Receipt Date: 20200912
  Transmission Date: 20201103
  Serious: Yes (Other)
  Sender: FDA-Public Use
  Company Number: CA-AMGEN-CANSP2020144062

PATIENT
  Sex: Female
  Weight: 2.49 kg

DRUGS (1)
  1. ARANESP [Suspect]
     Active Substance: DARBEPOETIN ALFA
     Indication: EXPOSURE DURING PREGNANCY
     Dosage: UNK
     Route: 064

REACTIONS (5)
  - Foetal growth restriction [Unknown]
  - Low birth weight baby [Unknown]
  - Tachycardia foetal [Unknown]
  - Foetal exposure during pregnancy [Unknown]
  - Premature baby [Unknown]
